FAERS Safety Report 11210106 (Version 1)
Quarter: 2015Q2

REPORT INFORMATION
  Report Type: Spontaneous
  Country: US (occurrence: US)
  Receive Date: 20150622
  Receipt Date: 20150622
  Transmission Date: 20150821
  Serious: No
  Sender: FDA-Public Use
  Company Number: US-ELI_LILLY_AND_COMPANY-US201506007207

PATIENT
  Sex: Male

DRUGS (1)
  1. HUMALOG [Suspect]
     Active Substance: INSULIN LISPRO
     Indication: PRODUCT USED FOR UNKNOWN INDICATION
     Dosage: UNK
     Route: 058

REACTIONS (17)
  - Insomnia [Unknown]
  - Fatigue [Unknown]
  - Nervousness [Unknown]
  - Pain [Unknown]
  - Dyspnoea [Unknown]
  - Chest discomfort [Unknown]
  - Visual impairment [Unknown]
  - Diplopia [Unknown]
  - Palpitations [Unknown]
  - Abdominal pain upper [Unknown]
  - Asthenia [Unknown]
  - Confusional state [Unknown]
  - Nightmare [Unknown]
  - Hypoaesthesia [Unknown]
  - Paraesthesia [Unknown]
  - Abdominal discomfort [Unknown]
  - Anxiety [Unknown]
